FAERS Safety Report 7206556-8 (Version None)
Quarter: 2011Q1

REPORT INFORMATION
  Report Type: 
  Country: None (occurrence: None)
  Receive Date: 20110103
  Receipt Date: 20101221
  Transmission Date: 20110831
  Serious: Yes (Other)
  Sender: FDA-Public Use
  Company Number: PHHY2010CA53801

PATIENT
  Sex: Female

DRUGS (1)
  1. SANDOSTATIN LAR [Suspect]
     Indication: THYMOMA
     Dosage: 20 MG, QMO
     Route: 030
     Dates: start: 20100715

REACTIONS (3)
  - DIARRHOEA [None]
  - BREAST MASS [None]
  - NAUSEA [None]
